FAERS Safety Report 15499436 (Version 2)
Quarter: 2019Q2

REPORT INFORMATION
  Report Type: Spontaneous
  Country: US (occurrence: US)
  Receive Date: 20181015
  Receipt Date: 20190426
  Transmission Date: 20190711
  Serious: Yes (Hospitalization)
  Sender: FDA-Public Use
  Company Number: US-RADIUS HEALTH INC.-2018US002208

PATIENT

DRUGS (1)
  1. TYMLOS [Suspect]
     Active Substance: ABALOPARATIDE
     Indication: OSTEOPOROSIS POSTMENOPAUSAL
     Dosage: 80 MCG, DIALY
     Route: 058
     Dates: start: 20180612

REACTIONS (5)
  - Fatigue [Unknown]
  - Dizziness [Unknown]
  - Hypotension [Unknown]
  - Hospitalisation [Recovering/Resolving]
  - Product dose omission [Recovered/Resolved]

NARRATIVE: CASE EVENT DATE: 20180901
